FAERS Safety Report 15526194 (Version 2)
Quarter: 2019Q1

REPORT INFORMATION
  Report Type: Spontaneous
  Country: DE (occurrence: DE)
  Receive Date: 20181018
  Receipt Date: 20190319
  Transmission Date: 20190417
  Serious: Yes (Hospitalization)
  Sender: FDA-Public Use
  Company Number: DE-SA-2018SA024063

PATIENT
  Age: 3 Month
  Sex: Female

DRUGS (2)
  1. AUBAGIO [Suspect]
     Active Substance: TERIFLUNOMIDE
     Indication: MATERNAL EXPOSURE DURING PREGNANCY
     Dosage: 14 MG,UNK
     Route: 050
  2. AUBAGIO [Suspect]
     Active Substance: TERIFLUNOMIDE
     Indication: MATERNAL EXPOSURE DURING BREAST FEEDING

REACTIONS (3)
  - Foetal exposure during pregnancy [Unknown]
  - Arrhythmia neonatal [Unknown]
  - Exposure via breast milk [Unknown]

NARRATIVE: CASE EVENT DATE: 2018
